FAERS Safety Report 8272967-5 (Version None)
Quarter: 2012Q2

REPORT INFORMATION
  Report Type: 
  Country: None (occurrence: None)
  Receive Date: 20120411
  Receipt Date: 20120402
  Transmission Date: 20120825
  Serious: Yes (Other)
  Sender: FDA-Public Use
  Company Number: US-JNJFOC-20120401256

PATIENT
  Sex: Male
  Weight: 106.6 kg

DRUGS (16)
  1. CARTIA XT [Concomitant]
     Indication: HYPERTENSION
     Route: 048
  2. OXYCONTIN [Concomitant]
     Indication: PAIN
     Route: 048
  3. XARELTO [Suspect]
     Indication: ATRIAL FIBRILLATION
     Route: 048
     Dates: start: 20120307
  4. CARVEDILOL [Concomitant]
     Indication: HYPERTENSION
     Route: 048
     Dates: start: 20120101
  5. LYRICA [Concomitant]
     Indication: PAIN
     Route: 048
     Dates: start: 20110101
  6. TAMSULOSIN HCL [Concomitant]
     Indication: ANORECTAL DISORDER
     Route: 048
     Dates: start: 20110101
  7. HUMALOG [Concomitant]
     Route: 058
  8. JANUVIA [Concomitant]
     Indication: DIABETES MELLITUS
     Route: 048
  9. PLAVIX [Concomitant]
     Indication: ANTICOAGULANT THERAPY
     Route: 048
  10. OXYCODONE HCL AND ACETAMINOPHEN [Concomitant]
     Indication: PAIN
     Route: 048
     Dates: start: 20110101
  11. FISH OIL [Concomitant]
     Indication: CARDIAC DISORDER
     Route: 048
  12. DIGOXIN [Concomitant]
     Indication: CARDIAC DISORDER
     Route: 048
  13. LANTUS [Concomitant]
     Indication: DIABETES MELLITUS
     Route: 058
  14. METFORMIN HCL [Concomitant]
     Indication: DIABETES MELLITUS
     Route: 048
  15. FUROSEMIDE [Concomitant]
     Indication: DIURETIC THERAPY
     Route: 048
     Dates: start: 20120101
  16. DOC-Q-LACE [Concomitant]
     Indication: ABNORMAL FAECES
     Route: 048

REACTIONS (3)
  - FEAR [None]
  - ANXIETY [None]
  - INSOMNIA [None]
